FAERS Safety Report 16601057 (Version 1)
Quarter: 2019Q3

REPORT INFORMATION
  Report Type: Spontaneous
  Country: FR (occurrence: FR)
  Receive Date: 20190719
  Receipt Date: 20190719
  Transmission Date: 20191004
  Serious: Yes (Other)
  Sender: FDA-Public Use
  Company Number: FR-TEVA-2019-FR-1078251

PATIENT
  Age: 52 Year
  Sex: Male
  Weight: 63.4 kg

DRUGS (22)
  1. PANTOPRAZOLE [Suspect]
     Active Substance: PANTOPRAZOLE
     Indication: PRODUCT USED FOR UNKNOWN INDICATION
     Route: 042
     Dates: start: 20190527, end: 20190529
  2. AUGMENTIN [Suspect]
     Active Substance: AMOXICILLIN\CLAVULANATE POTASSIUM
     Indication: PNEUMOCYSTIS JIROVECII PNEUMONIA
     Dosage: 3 DOSAGE FORMS DAILY;
     Route: 042
     Dates: start: 20190529, end: 20190608
  3. MAGNESIUM PIDOLATE [Concomitant]
     Active Substance: MAGNESIUM PIDOLATE
  4. KAYEXALATE [Concomitant]
     Active Substance: SODIUM POLYSTYRENE SULFONATE
  5. LANSOYL [Concomitant]
     Active Substance: MINERAL OIL
  6. TRUVADA [Concomitant]
     Active Substance: EMTRICITABINE\TENOFOVIR DISOPROXIL FUMARATE
  7. HYDROCORTISONE. [Concomitant]
     Active Substance: HYDROCORTISONE
  8. DOLUTEGRAVIR [Concomitant]
     Active Substance: DOLUTEGRAVIR
  9. TRIUMEQ [Concomitant]
     Active Substance: ABACAVIR SULFATE\DOLUTEGRAVIR SODIUM\LAMIVUDINE
  10. GLIBENCLAMIDE [Concomitant]
     Active Substance: GLYBURIDE
  11. AMOXICILLIN. [Suspect]
     Active Substance: AMOXICILLIN
     Indication: PNEUMOCYSTIS JIROVECII PNEUMONIA
     Dosage: 3 GRAM DAILY;
     Route: 048
     Dates: start: 20190603, end: 20190607
  12. CHOLECALCIFEROL [Concomitant]
     Active Substance: CHOLECALCIFEROL
  13. METOCLOPRAMIDE. [Concomitant]
     Active Substance: METOCLOPRAMIDE
  14. BACTRIM [Suspect]
     Active Substance: SULFAMETHOXAZOLE\TRIMETHOPRIM
     Dosage: 1600 MG + 320 MG/ JOUR
     Route: 048
     Dates: start: 20190531, end: 20190604
  15. PARACETAMOL [Concomitant]
     Active Substance: ACETAMINOPHEN
  16. LOVENOX [Concomitant]
     Active Substance: ENOXAPARIN SODIUM
  17. SODIUM CHLORIDE. [Concomitant]
     Active Substance: SODIUM CHLORIDE
  18. PHOSPHONEUROS [Concomitant]
     Active Substance: CALCIUM PHOSPHATE, DIBASIC, ANHYDROUS\MAGNESIUM GLYCEROPHOSPHATE\PHOSPHORIC ACID\SODIUM PHOSPHATE, DIBASIC
  19. BEVITINE [Concomitant]
     Active Substance: THIAMINE HYDROCHLORIDE
  20. BACTRIM [Suspect]
     Active Substance: SULFAMETHOXAZOLE\TRIMETHOPRIM
     Indication: PNEUMOCYSTIS JIROVECII PNEUMONIA
     Dosage: 4.8 G SULFAMETHOXAZOLE + 0.48 G/J TRIM?THOPRIME
     Route: 048
     Dates: start: 20190528, end: 20190531
  21. FLUCONAZOLE. [Concomitant]
     Active Substance: FLUCONAZOLE
  22. DIFFU K [Concomitant]
     Active Substance: POTASSIUM CHLORIDE

REACTIONS (2)
  - Hyponatraemia [Not Recovered/Not Resolved]
  - Hyperkalaemia [Recovered/Resolved]

NARRATIVE: CASE EVENT DATE: 20190605
